FAERS Safety Report 13913300 (Version 1)
Quarter: 2017Q3

REPORT INFORMATION
  Report Type: Spontaneous
  Country: US (occurrence: US)
  Receive Date: 20170828
  Receipt Date: 20170828
  Transmission Date: 20171127
  Serious: No
  Sender: FDA-Public Use
  Company Number: US-ROCHE-1130577

PATIENT
  Sex: Female
  Weight: 18.6 kg

DRUGS (5)
  1. NUTROPIN [Suspect]
     Active Substance: SOMATROPIN
     Indication: DEVELOPMENTAL DELAY
     Route: 058
     Dates: start: 19980223
  2. LABETALOL [Concomitant]
     Active Substance: LABETALOL\LABETALOL HYDROCHLORIDE
     Route: 065
  3. PREDNISONE. [Concomitant]
     Active Substance: PREDNISONE
     Route: 065
  4. CLONIDINE PATCH [Concomitant]
     Active Substance: CLONIDINE
     Dosage: 0.1 MG/DAY
     Route: 065
  5. IMURAN [Concomitant]
     Active Substance: AZATHIOPRINE
     Route: 065

REACTIONS (4)
  - Tooth development disorder [Unknown]
  - Toothache [Unknown]
  - Hypertrichosis [Unknown]
  - Gingival hypertrophy [Unknown]
